FAERS Safety Report 17831303 (Version 1)
Quarter: 2020Q2

REPORT INFORMATION
  Report Type: Spontaneous
  Country: US (occurrence: US)
  Receive Date: 20200527
  Receipt Date: 20200527
  Transmission Date: 20200714
  Serious: Yes (Life-Threatening, Other)
  Sender: FDA-Public Use
  Company Number: US-NAPPMUNDI-USA-2020-0152981

PATIENT
  Sex: Male

DRUGS (2)
  1. OXYCONTIN [Suspect]
     Active Substance: OXYCODONE HYDROCHLORIDE
     Indication: PRODUCT USED FOR UNKNOWN INDICATION
     Dosage: UNKNOWN
     Route: 048
  2. DILAUDID [Suspect]
     Active Substance: HYDROMORPHONE HYDROCHLORIDE
     Indication: PRODUCT USED FOR UNKNOWN INDICATION
     Dosage: UNKNOWN
     Route: 048

REACTIONS (12)
  - Decubitus ulcer [Unknown]
  - Thrombosis [Unknown]
  - Osteomyelitis [Unknown]
  - Cardiac disorder [Unknown]
  - Memory impairment [Unknown]
  - Overdose [Unknown]
  - Cerebral disorder [Unknown]
  - Impaired work ability [Unknown]
  - Drug dependence [Unknown]
  - Pneumonia [Unknown]
  - Lung disorder [Unknown]
  - Learning disability [Unknown]
